FAERS Safety Report 8113675-0 (Version None)
Quarter: 2012Q1

REPORT INFORMATION
  Report Type: 
  Country: None (occurrence: None)
  Receive Date: 20120203
  Receipt Date: 20120131
  Transmission Date: 20120608
  Serious: Yes (Life-Threatening, Hospitalization, Other)
  Sender: FDA-Public Use
  Company Number: US-US-EMD SERONO, INC.-7110190

PATIENT
  Sex: Female

DRUGS (6)
  1. NEXIUM [Concomitant]
  2. VESICARE [Concomitant]
  3. TOPAMAX [Concomitant]
  4. NORVASC [Concomitant]
     Indication: HYPERTENSION
  5. EFFEXOR [Concomitant]
  6. REBIF [Suspect]
     Indication: MULTIPLE SCLEROSIS
     Route: 058
     Dates: start: 20080130, end: 20111008

REACTIONS (3)
  - PNEUMONIA [None]
  - INTESTINAL PERFORATION [None]
  - IDIOPATHIC THROMBOCYTOPENIC PURPURA [None]
